FAERS Safety Report 7545656-X (Version None)
Quarter: 2011Q2

REPORT INFORMATION
  Report Type: 
  Country: None (occurrence: None)
  Receive Date: 20110614
  Receipt Date: 20110608
  Transmission Date: 20111010
  Serious: Yes (Death, Hospitalization)
  Sender: FDA-Public Use
  Company Number: US-BRISTOL-MYERS SQUIBB COMPANY-15657349

PATIENT
  Age: 57 Year
  Sex: Female
  Weight: 106 kg

DRUGS (9)
  1. LEVOTHYROXINE SODIUM [Concomitant]
  2. BENADRYL [Concomitant]
  3. FLUOROURACIL [Suspect]
     Indication: HEAD AND NECK CANCER
     Dosage: NO OF INF:3
     Route: 042
     Dates: start: 20110124, end: 20110321
  4. SYNTHROID [Concomitant]
     Indication: HYPOTHYROIDISM
  5. POTASSIUM CHLORIDE [Concomitant]
  6. LEVOTHYROXINE SODIUM [Concomitant]
  7. CETUXIMAB [Suspect]
     Indication: HEAD AND NECK CANCER
     Dosage: NO OF INF:8
     Route: 042
     Dates: start: 20110124, end: 20110324
  8. CISPLATIN [Suspect]
     Indication: HEAD AND NECK CANCER
     Dosage: NO OF INF:3
     Route: 042
     Dates: start: 20110124, end: 20110317
  9. PROZAC [Concomitant]
     Indication: DEPRESSION

REACTIONS (2)
  - NEUTROPENIA [None]
  - SEPSIS [None]
